FAERS Safety Report 10241467 (Version 2)
Quarter: 2014Q2

REPORT INFORMATION
  Report Type: Report from Study
  Country: CA (occurrence: CA)
  Receive Date: 20140617
  Receipt Date: 20140617
  Transmission Date: 20141212
  Serious: Yes (Hospitalization)
  Sender: FDA-Public Use
  Company Number: CA-JNJFOC-20140517608

PATIENT
  Age: 16 Year
  Sex: Male
  Weight: 44.9 kg

DRUGS (7)
  1. SIMPONI [Suspect]
     Indication: CROHN^S DISEASE
     Route: 058
     Dates: start: 20140527
  2. SIMPONI [Suspect]
     Indication: CROHN^S DISEASE
     Route: 058
     Dates: start: 20140513, end: 20140513
  3. SIMPONI [Suspect]
     Indication: CROHN^S DISEASE
     Route: 058
  4. SIMPONI [Suspect]
     Indication: COLITIS ULCERATIVE
     Route: 058
     Dates: start: 20140527
  5. SIMPONI [Suspect]
     Indication: COLITIS ULCERATIVE
     Route: 058
     Dates: start: 20140513, end: 20140513
  6. SIMPONI [Suspect]
     Indication: COLITIS ULCERATIVE
     Route: 058
  7. MODULEN [Concomitant]
     Route: 065

REACTIONS (2)
  - Cough [Unknown]
  - Pyrexia [Unknown]
